FAERS Safety Report 7395941 (Version 2)
Quarter: 2014Q3

REPORT INFORMATION
  Report Type: Spontaneous
  Country: US (occurrence: None)
  Receive Date: 20100513
  Receipt Date: 20140804
  Transmission Date: 20150326
  Serious: Yes (Hospitalization, Other)
  Sender: FDA-Public Use
  Company Number: 2010S1002716

PATIENT
  Age: 47 Year
  Sex: Female

DRUGS (4)
  1. CALCIUM [Concomitant]
     Active Substance: CALCIUM
  2. MULTIVITAMIN (VITAMINS NOS) [Concomitant]
     Active Substance: VITAMINS
  3. PHOSPHO-SODA [Suspect]
     Active Substance: SODIUM PHOSPHATE, DIBASIC\SODIUM PHOSPHATE, MONOBASIC
     Indication: HYSTERECTOMY
     Dosage: PO
     Route: 048
     Dates: start: 20030510, end: 20030511
  4. PROMETRIUM (PROGESTERONE) [Concomitant]

REACTIONS (51)
  - Flank pain [None]
  - Vomiting [None]
  - Arthralgia [None]
  - Hepatic cirrhosis [None]
  - Headache [None]
  - Chromaturia [None]
  - Gastrooesophageal reflux disease [None]
  - Portal hypertension [None]
  - Gastric disorder [None]
  - Body temperature increased [None]
  - Procedural nausea [None]
  - Acute prerenal failure [None]
  - Nephrolithiasis [None]
  - Large intestine polyp [None]
  - Ascites [None]
  - Abdominal wall haematoma [None]
  - Atelectasis [None]
  - Pelvic pain [None]
  - Renal failure chronic [None]
  - Dizziness [None]
  - Dyspnoea [None]
  - Hyperparathyroidism secondary [None]
  - Micturition urgency [None]
  - Blood pressure decreased [None]
  - Anaemia [None]
  - Musculoskeletal chest pain [None]
  - No therapeutic response [None]
  - Obstructive uropathy [None]
  - Urinary tract infection [None]
  - Chronic gastritis [None]
  - Renal failure [None]
  - Blood uric acid increased [None]
  - Weight decreased [None]
  - Oesophageal spasm [None]
  - Sepsis [None]
  - Cholelithiasis [None]
  - Hepatitis C [None]
  - Pleural effusion [None]
  - Constipation [None]
  - Oedema peripheral [None]
  - Pollakiuria [None]
  - Urine odour abnormal [None]
  - Dysphagia [None]
  - Pelvic mass [None]
  - Renal tubular necrosis [None]
  - Hypertension [None]
  - Vitamin D deficiency [None]
  - Glomerulonephritis membranoproliferative [None]
  - Diabetes mellitus [None]
  - Muscle tightness [None]
  - Swelling [None]

NARRATIVE: CASE EVENT DATE: 20030514
